FAERS Safety Report 13650017 (Version 1)
Quarter: 2017Q2

REPORT INFORMATION
  Report Type: Spontaneous
  Country: US (occurrence: US)
  Receive Date: 20170614
  Receipt Date: 20170614
  Transmission Date: 20170830
  Serious: No
  Sender: FDA-Public Use
  Company Number: US-PFIZER INC-2017253885

PATIENT
  Age: 61 Year
  Sex: Female
  Weight: 54 kg

DRUGS (4)
  1. CHANTIX [Suspect]
     Active Substance: VARENICLINE TARTRATE
     Dosage: 0.5 MG, 2X/DAY FOR 4 DAYS
     Route: 048
  2. OXYCODONE [Concomitant]
     Active Substance: OXYCODONE
     Indication: PAIN
     Dosage: 1 TO 2 BY MOUTH EVERY 4 HOURS AS NEEDED
     Route: 048
     Dates: start: 20170425
  3. CHANTIX [Suspect]
     Active Substance: VARENICLINE TARTRATE
     Dosage: 1 MG, 2X/DAY
     Route: 048
     Dates: start: 201704, end: 20170602
  4. CHANTIX [Suspect]
     Active Substance: VARENICLINE TARTRATE
     Indication: SMOKING CESSATION THERAPY
     Dosage: 0.5 MG, 1X/DAY FOR 3 DAYS
     Route: 048
     Dates: start: 201703

REACTIONS (3)
  - Pain in extremity [Recovering/Resolving]
  - Pain in extremity [Recovering/Resolving]
  - Drug dispensing error [Unknown]

NARRATIVE: CASE EVENT DATE: 201705
